FAERS Safety Report 21664706 (Version 1)
Quarter: 2022Q4

REPORT INFORMATION
  Report Type: Report from Study
  Country: CA (occurrence: CA)
  Receive Date: 20221130
  Receipt Date: 20221130
  Transmission Date: 20230112
  Serious: Yes (Other)
  Sender: FDA-Public Use
  Company Number: CA-MYLANLABS-2022M1133486

PATIENT
  Sex: Female
  Weight: 47.7 kg

DRUGS (1)
  1. OGIVRI [Suspect]
     Active Substance: TRASTUZUMAB-DKST
     Indication: Breast cancer metastatic
     Dosage: 286 MILLIGRAM, Q3W
     Route: 042
     Dates: start: 20220606

REACTIONS (1)
  - Seizure [Unknown]
